FAERS Safety Report 10988803 (Version 2)
Quarter: 2015Q2

REPORT INFORMATION
  Report Type: Spontaneous
  Country: US (occurrence: US)
  Receive Date: 20150405
  Receipt Date: 20150525
  Transmission Date: 20150821
  Serious: No
  Sender: FDA-Public Use
  Company Number: US-JNJFOC-20141215486

PATIENT
  Sex: Male
  Weight: 69.85 kg

DRUGS (2)
  1. REMICADE [Suspect]
     Active Substance: INFLIXIMAB
     Indication: CROHN^S DISEASE
     Route: 042
  2. REMICADE [Suspect]
     Active Substance: INFLIXIMAB
     Indication: CROHN^S DISEASE
     Route: 042

REACTIONS (5)
  - Abnormal loss of weight [Unknown]
  - Remission not achieved [Unknown]
  - Unevaluable event [Recovered/Resolved]
  - Fear [Recovered/Resolved]
  - Inappropriate schedule of drug administration [Unknown]
